FAERS Safety Report 10065574 (Version 1)
Quarter: 2014Q2

REPORT INFORMATION
  Report Type: Spontaneous
  Country: US (occurrence: US)
  Receive Date: 20140408
  Receipt Date: 20140408
  Transmission Date: 20141212
  Serious: Yes (Life-Threatening)
  Sender: FDA-Public Use
  Company Number: US-BRACCO-010725

PATIENT
  Age: 75 Year
  Sex: Male

DRUGS (4)
  1. OMNIPAQUE [Suspect]
     Indication: COMPUTERISED TOMOGRAM
     Dosage: 2.5%
     Dates: start: 2012, end: 2012
  2. ISOVUE [Suspect]
     Indication: COMPUTERISED TOMOGRAM
     Route: 042
     Dates: start: 2012, end: 2012
  3. OMNIPAQUE [Suspect]
     Indication: COMPUTERISED TOMOGRAM
     Dosage: 2.5% ADMINISTERED 12 DAYS AFTER FIRST ADMINISTRATION OF IOHEXOL
     Dates: start: 2012, end: 2012
  4. GLEEVAC [Concomitant]
     Dosage: HISTORICAL CONCOMITANT MEDICATION
     Dates: start: 2008

REACTIONS (1)
  - Basedow^s disease [Recovered/Resolved]
